FAERS Safety Report 9704266 (Version 1)
Quarter: 2013Q4

REPORT INFORMATION
  Report Type: Spontaneous
  Country: US (occurrence: US)
  Receive Date: 20131122
  Receipt Date: 20131122
  Transmission Date: 20140711
  Serious: Yes (Other)
  Sender: FDA-Public Use
  Company Number: US-AMGEN-USASP2013081236

PATIENT
  Age: 65 Year
  Sex: Female

DRUGS (7)
  1. PROLIA [Suspect]
     Indication: OSTEOPOROSIS POSTMENOPAUSAL
     Dosage: UNK
     Route: 065
     Dates: start: 201309
  2. CALCIUM [Concomitant]
     Dosage: 1200 MG, QD
  3. VITAMIN D                          /00107901/ [Concomitant]
     Dosage: 50000 IU, QWK
  4. PILOCARPINE [Concomitant]
     Dosage: 5 MG, TID
  5. METFORMIN HCL [Concomitant]
     Dosage: UNK
  6. OMEPRAZOLE [Concomitant]
     Dosage: 20 MG, QD
  7. CALCIUM WITH VITAMIN D             /00944201/ [Concomitant]
     Dosage: 600 MG, QD

REACTIONS (7)
  - Spinal column stenosis [Unknown]
  - Gastric disorder [Unknown]
  - Blood cholesterol abnormal [Unknown]
  - Gastrointestinal sounds abnormal [Unknown]
  - Blood triglycerides increased [Unknown]
  - Abdominal pain upper [Unknown]
  - Constipation [Unknown]
